FAERS Safety Report 11099549 (Version 2)
Quarter: 2015Q2

REPORT INFORMATION
  Report Type: Spontaneous
  Country: GB (occurrence: GB)
  Receive Date: 20150508
  Receipt Date: 20150521
  Transmission Date: 20150821
  Serious: Yes (Other)
  Sender: FDA-Public Use
  Company Number: GB-JNJFOC-20150501005

PATIENT
  Sex: Female

DRUGS (1)
  1. NICORETTE QUICKMIST MOUTHSPRAY [Suspect]
     Active Substance: NICOTINE
     Indication: ACCIDENTAL EXPOSURE TO PRODUCT
     Route: 050

REACTIONS (7)
  - Oropharyngeal pain [Unknown]
  - Headache [Unknown]
  - Cough [Unknown]
  - Breast cancer [Unknown]
  - Malaise [Unknown]
  - Accidental exposure to product [Unknown]
  - Nausea [Unknown]
